FAERS Safety Report 12781214 (Version 1)
Quarter: 2016Q3

REPORT INFORMATION
  Report Type: Spontaneous
  Country: US (occurrence: US)
  Receive Date: 20160926
  Receipt Date: 20160926
  Transmission Date: 20161109
  Serious: No
  Sender: FDA-Public Use
  Company Number: US-GLENMARK PHARMACEUTICALS INC, USA.-2015GMK018991

PATIENT
  Age: 31 Year
  Sex: Female

DRUGS (2)
  1. MONTELUKAST [Suspect]
     Active Substance: MONTELUKAST SODIUM
     Indication: GASTROENTERITIS EOSINOPHILIC
     Dosage: 10 MG, UNK
  2. METHYLPREDNISOLONE. [Concomitant]
     Active Substance: METHYLPREDNISOLONE
     Indication: GASTROENTERITIS EOSINOPHILIC
     Dosage: 40 MG, UNK
     Route: 042

REACTIONS (1)
  - Off label use [Unknown]
